FAERS Safety Report 8393871-8 (Version None)
Quarter: 2012Q2

REPORT INFORMATION
  Report Type: 
  Country: None (occurrence: None)
  Receive Date: 20120530
  Receipt Date: 20120518
  Transmission Date: 20120825
  Serious: Yes (Hospitalization)
  Sender: FDA-Public Use
  Company Number: US-BRISTOL-MYERS SQUIBB COMPANY-16121576

PATIENT
  Age: 57 Year
  Sex: Male
  Weight: 81 kg

DRUGS (7)
  1. PRADAXA [Concomitant]
     Indication: ATRIAL FIBRILLATION
     Dosage: 50 BID
     Route: 048
     Dates: start: 20110927
  2. METOPROLOL TARTRATE [Concomitant]
     Indication: HYPERTENSION
     Dosage: EVERY 12 HRS
     Route: 048
     Dates: start: 20110927
  3. HYDROCODONE BITARTRATE [Concomitant]
     Indication: PAIN
     Dosage: 1DF:1TAB, STRENGTH: 5/325, 1 TABLET EVERY 4 HRS AS NEEDED.
  4. COLACE [Concomitant]
     Indication: DIARRHOEA
  5. DILAUDID [Concomitant]
     Indication: PAIN
     Dates: start: 20111120
  6. LOVENOX [Concomitant]
     Indication: ANTICOAGULANT THERAPY
     Route: 058
     Dates: start: 20110927
  7. DASATINIB [Suspect]
     Indication: BLADDER CANCER
     Dosage: DISCONTIMUED ON 27SEP2011
     Route: 048
     Dates: start: 20110905, end: 20110926

REACTIONS (4)
  - WOUND DEHISCENCE [None]
  - ARRHYTHMIA [None]
  - PELVIC HAEMATOMA [None]
  - RETROPERITONEAL HAEMATOMA [None]
